FAERS Safety Report 23945357 (Version 5)
Quarter: 2024Q4

REPORT INFORMATION
  Report Type: Spontaneous
  Country: US (occurrence: US)
  Receive Date: 20240606
  Receipt Date: 20241105
  Transmission Date: 20250114
  Serious: Yes (Hospitalization, Other)
  Sender: AURINIA PHARMACEUTICALS
  Company Number: US-AURINIA PHARMACEUTICALS INC.-AUR-005986

PATIENT
  Age: 68 Year
  Sex: Male
  Weight: 149.66 kg

DRUGS (9)
  1. LUPKYNIS [Suspect]
     Active Substance: VOCLOSPORIN
     Indication: Lupus nephritis
     Dosage: 15.8 MILLIGRAM, BID
     Route: 048
     Dates: start: 20240308, end: 20240604
  2. CELLCEPT [Suspect]
     Active Substance: MYCOPHENOLATE MOFETIL
     Indication: Product used for unknown indication
     Dosage: UNK
  3. DELTASONE [Suspect]
     Active Substance: PREDNISONE
     Indication: Steroid therapy
     Dosage: UNK
     Route: 048
  4. DELTASONE [Suspect]
     Active Substance: PREDNISONE
     Dosage: 60 MILLIGRAM, QD
     Route: 048
     Dates: start: 20240607, end: 20240712
  5. DELTASONE [Suspect]
     Active Substance: PREDNISONE
     Dosage: 180 MILLIGRAM, QD
     Route: 048
     Dates: start: 20240713
  6. MYFORTIC [Suspect]
     Active Substance: MYCOPHENOLATE SODIUM
     Indication: Product used for unknown indication
     Dosage: UNK
  7. ELIQUIS [Concomitant]
     Active Substance: APIXABAN
     Indication: Anticoagulant therapy
     Dosage: 5 MILLIGRAM, BID
     Route: 048
     Dates: start: 20240712
  8. DEMADEX [Concomitant]
     Active Substance: TORSEMIDE
     Indication: Oedema
     Dosage: 80 MILLIGRAM, BID
     Route: 048
     Dates: start: 20240607
  9. OXYGEN [Concomitant]
     Active Substance: OXYGEN
     Indication: Obstructive sleep apnoea syndrome
     Dosage: INHALE 3L/MIN INTO LUNGS AS NEEDED AT NIGHT WITH CPAP

REACTIONS (7)
  - Proteinuria [Unknown]
  - Urine protein/creatinine ratio increased [Unknown]
  - Streptococcal bacteraemia [Recovered/Resolved]
  - Renal failure [Recovered/Resolved]
  - Cellulitis [Recovering/Resolving]
  - Oedema [Recovered/Resolved]
  - Gastrointestinal disorder [Unknown]

NARRATIVE: CASE EVENT DATE: 20240426
